FAERS Safety Report 26142951 (Version 1)
Quarter: 2025Q4

REPORT INFORMATION
  Report Type: Spontaneous
  Country: KR (occurrence: KR)
  Receive Date: 20251211
  Receipt Date: 20251211
  Transmission Date: 20260117
  Serious: Yes (Other)
  Sender: Kenvue
  Company Number: KR-KENVUE-20251202222

PATIENT
  Age: 5 Decade

DRUGS (1)
  1. TYLENOL 8HR [Suspect]
     Active Substance: ACETAMINOPHEN
     Indication: Analgesic therapy
     Dosage: 650 MILLIGRAM, ONCE A DAY (650 MILLIGRAM / 24 HOUR)
     Route: 065

REACTIONS (2)
  - Chest discomfort [Recovered/Resolved]
  - Angioedema [Recovered/Resolved]
